FAERS Safety Report 15555035 (Version 3)
Quarter: 2018Q4

REPORT INFORMATION
  Report Type: Report from Study
  Country: DE (occurrence: DE)
  Receive Date: 20181026
  Receipt Date: 20181214
  Transmission Date: 20190205
  Serious: Yes (Other)
  Sender: FDA-Public Use
  Company Number: PHHY2018DE134132

PATIENT
  Age: 75 Year
  Sex: Male

DRUGS (2)
  1. ENTRESTO [Suspect]
     Active Substance: SACUBITRIL\VALSARTAN
     Indication: CARDIAC FAILURE CHRONIC
     Dosage: 1 DF, (SACUBITRIL 49 MG/ VALSARTAN 51 MG) BID
     Route: 048
     Dates: start: 20180308, end: 20180418
  2. ENTRESTO [Suspect]
     Active Substance: SACUBITRIL\VALSARTAN
     Indication: CARDIAC FAILURE
     Dosage: 1 DF, (SACUBITRIL 24 MG/ VALSARTAN 26 MG) BID
     Route: 048
     Dates: start: 20180418

REACTIONS (5)
  - Osteoarthritis [Recovering/Resolving]
  - Arthritis [Recovering/Resolving]
  - Blood creatinine increased [Recovered/Resolved]
  - Blood potassium increased [Unknown]
  - Cerebrovascular accident [Unknown]

NARRATIVE: CASE EVENT DATE: 20180410
